FAERS Safety Report 10947884 (Version 1)
Quarter: 2015Q1

REPORT INFORMATION
  Report Type: Spontaneous
  Country: US (occurrence: US)
  Receive Date: 20150324
  Receipt Date: 20150324
  Transmission Date: 20150721
  Serious: Yes (Other)
  Sender: FDA-Public Use
  Company Number: US-AMGEN-USASP2015026404

PATIENT
  Age: 56 Year
  Sex: Female

DRUGS (1)
  1. PROLIA [Suspect]
     Active Substance: DENOSUMAB
     Indication: OSTEOPOROSIS
     Dosage: UNK, UNK
     Route: 065
     Dates: start: 20140904

REACTIONS (5)
  - Clostridium difficile infection [Recovering/Resolving]
  - Malaise [Unknown]
  - Immunosuppression [Unknown]
  - Perineal abscess [Unknown]
  - Infection [Unknown]

NARRATIVE: CASE EVENT DATE: 20150201
